FAERS Safety Report 7122983-1 (Version None)
Quarter: 2010Q4

REPORT INFORMATION
  Report Type: 
  Country: None (occurrence: None)
  Receive Date: 20101124
  Receipt Date: 20101117
  Transmission Date: 20110411
  Serious: Yes (Other)
  Sender: FDA-Public Use
  Company Number: US-AMGEN GMBH-QUU442729

PATIENT

DRUGS (4)
  1. NPLATE [Suspect]
     Indication: IDIOPATHIC THROMBOCYTOPENIC PURPURA
     Dosage: 1560 A?G, UNK
     Dates: start: 20100112, end: 20100909
  2. NPLATE [Suspect]
     Dosage: 1560 A?G/KG, UNK
     Dates: start: 20100112, end: 20100909
  3. NPLATE [Suspect]
     Dosage: 1560 A?G, UNK
     Route: 058
     Dates: start: 20100112, end: 20100909
  4. RITUXIMAB [Concomitant]
     Dosage: UNK UNK, UNK
     Dates: start: 20100921

REACTIONS (2)
  - HEPATITIS C VIRUS TEST POSITIVE [None]
  - THERAPEUTIC RESPONSE DECREASED [None]
